FAERS Safety Report 8338696-4 (Version None)
Quarter: 2012Q2

REPORT INFORMATION
  Report Type: 
  Country: None (occurrence: None)
  Receive Date: 20120504
  Receipt Date: 20120425
  Transmission Date: 20120825
  Serious: Yes (Hospitalization)
  Sender: FDA-Public Use
  Company Number: US-FRI-1000030146

PATIENT
  Sex: Female
  Weight: 5.33 kg

DRUGS (4)
  1. PRENATAL VITAMIN WITH FOLIC ACID [Concomitant]
     Dosage: 1 DF
     Route: 064
     Dates: start: 20110401
  2. SAVELLA [Suspect]
     Dosage: 100 MG
     Route: 064
     Dates: end: 20111025
  3. VITAMIN B-12 [Concomitant]
     Route: 064
  4. PROZAC [Concomitant]
     Dosage: 40 MG
     Route: 064

REACTIONS (3)
  - PNEUMONIA [None]
  - EAR INFECTION [None]
  - URINARY TRACT INFECTION [None]
